FAERS Safety Report 9437173 (Version 1)
Quarter: 2013Q3

REPORT INFORMATION
  Report Type: Spontaneous
  Country: US (occurrence: US)
  Receive Date: 20130802
  Receipt Date: 20130802
  Transmission Date: 20140515
  Serious: Yes (Other)
  Sender: FDA-Public Use
  Company Number: PHEH2013US015973

PATIENT
  Age: 51 Year
  Sex: Male

DRUGS (4)
  1. TEKTURNA [Suspect]
     Dosage: 300 MG, QD
  2. MICARDIS [Concomitant]
  3. PLAVIX [Concomitant]
  4. ASPIRIN [Concomitant]
     Dosage: 81 MG, QD

REACTIONS (7)
  - Hypertension [Unknown]
  - Obesity [Unknown]
  - Rheumatic fever [Unknown]
  - Cerebrovascular accident [Unknown]
  - Hemiparesis [Unknown]
  - Muscular weakness [Unknown]
  - Oedema peripheral [Unknown]
